FAERS Safety Report 8457150-2 (Version None)
Quarter: 2012Q2

REPORT INFORMATION
  Report Type: 
  Country: None (occurrence: None)
  Receive Date: 20120621
  Receipt Date: 20110718
  Transmission Date: 20120825
  Serious: Yes (Other)
  Sender: FDA-Public Use
  Company Number: PHHY2011TR116943

PATIENT
  Age: 84 Year
  Sex: Male

DRUGS (3)
  1. MEMANTINE HYDROCHLORIDE [Concomitant]
  2. EXELON [Suspect]
     Indication: DEMENTIA ALZHEIMER'S TYPE
  3. SEROQUEL [Concomitant]

REACTIONS (1)
  - PROSTATIC DISORDER [None]
